FAERS Safety Report 24166959 (Version 1)
Quarter: 2024Q3

REPORT INFORMATION
  Report Type: Spontaneous
  Country: US (occurrence: US)
  Receive Date: 20240802
  Receipt Date: 20240802
  Transmission Date: 20241017
  Serious: No
  Sender: ENDO
  Company Number: ENDB23-03360

PATIENT
  Age: 35 Year
  Sex: Male
  Weight: 63.946 kg

DRUGS (12)
  1. EDEX [Suspect]
     Active Substance: ALPROSTADIL
     Indication: Erectile dysfunction
     Dosage: UNK UNKNOWN, UNKNOWN
     Route: 065
     Dates: start: 2023
  2. EDEX [Suspect]
     Active Substance: ALPROSTADIL
     Indication: Erectile dysfunction
     Dosage: UNK UNKNOWN, UNKNOWN
     Route: 065
     Dates: start: 2023
  3. EDEX [Suspect]
     Active Substance: ALPROSTADIL
     Indication: Erectile dysfunction
     Dosage: UNK UNKNOWN, UNKNOWN
     Route: 065
     Dates: start: 2023
  4. EDEX [Suspect]
     Active Substance: ALPROSTADIL
     Indication: Erectile dysfunction
     Dosage: UNK UNKNOWN, UNKNOWN
     Route: 065
     Dates: start: 2023
  5. EDEX [Suspect]
     Active Substance: ALPROSTADIL
     Indication: Erectile dysfunction
     Dosage: UNK UNKNOWN, UNKNOWN
     Route: 065
     Dates: start: 2023
  6. EDEX [Suspect]
     Active Substance: ALPROSTADIL
     Dosage: UNK UNKNOWN, UNKNOWN
     Route: 065
     Dates: start: 2012
  7. EDEX [Suspect]
     Active Substance: ALPROSTADIL
     Dosage: UNK UNKNOWN, UNKNOWN
     Route: 065
     Dates: start: 2012
  8. EDEX [Suspect]
     Active Substance: ALPROSTADIL
     Dosage: UNK UNKNOWN, UNKNOWN
     Route: 065
     Dates: start: 2012
  9. EDEX [Suspect]
     Active Substance: ALPROSTADIL
     Dosage: UNK UNKNOWN, UNKNOWN
     Route: 065
     Dates: start: 2012
  10. EDEX [Suspect]
     Active Substance: ALPROSTADIL
     Dosage: UNK UNKNOWN, UNKNOWN
     Route: 065
     Dates: start: 2012
  11. LAMICTAL [Concomitant]
     Active Substance: LAMOTRIGINE
     Indication: Mood swings
     Dosage: UNK UNKNOWN, UNKNOWN, SYTARTED WHEN PATIENT WAS 19-YEARS-OLD
     Route: 065
  12. VARIOUS MEDICATION [Concomitant]
     Indication: Mental disorder
     Dosage: UNK UNKNOWN, UNKNOWN
     Route: 065

REACTIONS (1)
  - Drug effect less than expected [Unknown]

NARRATIVE: CASE EVENT DATE: 20230801
